FAERS Safety Report 11473700 (Version 2)
Quarter: 2019Q4

REPORT INFORMATION
  Report Type: Report from Study
  Country: US (occurrence: US)
  Receive Date: 20150908
  Receipt Date: 20191213
  Transmission Date: 20200122
  Serious: No
  Sender: FDA-Public Use
  Company Number: GXBR2015US001874

PATIENT
  Age: 13 Year
  Sex: Male
  Weight: 49.5 kg

DRUGS (2)
  1. SOMATROPIN (RHGH) LYOPHILIZED POWDER [Suspect]
     Active Substance: SOMATROPIN
     Indication: GROWTH RETARDATION
     Dosage: UNK DF, UNK
     Route: 058
     Dates: start: 20120917, end: 20140827
  2. CONCERTA [Concomitant]
     Active Substance: METHYLPHENIDATE HYDROCHLORIDE
     Indication: GROWTH RETARDATION
     Dosage: 36 MG
     Route: 065
     Dates: start: 20131123

REACTIONS (2)
  - Device issue [Unknown]
  - Injection site pain [Recovered/Resolved]

NARRATIVE: CASE EVENT DATE: 20140627
